FAERS Safety Report 7409256-4 (Version None)
Quarter: 2011Q2

REPORT INFORMATION
  Report Type: 
  Country: None (occurrence: None)
  Receive Date: 20110412
  Receipt Date: 20110407
  Transmission Date: 20111010
  Serious: Yes (Hospitalization, Congenital Anomaly)
  Sender: FDA-Public Use
  Company Number: A0903320A

PATIENT
  Sex: Female

DRUGS (6)
  1. VISTARIL [Concomitant]
     Route: 064
  2. KEFLEX [Concomitant]
     Route: 064
  3. PROCARDIA [Concomitant]
     Route: 064
  4. PAXIL [Suspect]
     Indication: DEPRESSION
     Dosage: 20MG UNKNOWN
     Route: 064
  5. AMOXICILLIN [Concomitant]
     Route: 064
  6. ELAVIL [Concomitant]
     Route: 064

REACTIONS (5)
  - FAILURE TO THRIVE [None]
  - ATRIAL SEPTAL DEFECT [None]
  - PULMONARY ARTERY STENOSIS CONGENITAL [None]
  - RIGHT VENTRICULAR HYPERTROPHY [None]
  - DRUG EXPOSURE DURING PREGNANCY [None]
